FAERS Safety Report 6695039-X (Version None)
Quarter: 2010Q2

REPORT INFORMATION
  Report Type: 
  Country: None (occurrence: None)
  Receive Date: 20100423
  Receipt Date: 20100405
  Transmission Date: 20101027
  Serious: Yes (Other)
  Sender: FDA-Public Use
  Company Number: US-ROCHE-665154

PATIENT
  Sex: Female
  Weight: 58 kg

DRUGS (6)
  1. PEGASYS [Suspect]
     Indication: HEPATITIS C
     Route: 058
     Dates: start: 20090318, end: 20090901
  2. GRANULOKINE [Suspect]
     Indication: DRUG USE FOR UNKNOWN INDICATION
     Route: 065
  3. EPOETIN ALFA [Suspect]
     Indication: DRUG USE FOR UNKNOWN INDICATION
     Route: 065
  4. RIBAVIRIN [Concomitant]
     Route: 048
  5. ENOXAPARIN SODIUM [Concomitant]
     Indication: THROMBOSIS PROPHYLAXIS
     Route: 058
     Dates: start: 20091017
  6. COUMADIN [Concomitant]
     Dosage: ADMINISTERED AS HALF AND ONE TABLET IN ALTERNATE DAYS
     Route: 048
     Dates: start: 20071001, end: 20091017

REACTIONS (14)
  - ANAEMIA [None]
  - BONE PAIN [None]
  - CARBOHYDRATE ANTIGEN 15-3 INCREASED [None]
  - DEPRESSION [None]
  - DIARRHOEA [None]
  - DYSPNOEA [None]
  - FATIGUE [None]
  - HEART RATE INCREASED [None]
  - HYPERTENSION [None]
  - LEUKOPENIA [None]
  - LYMPHADENITIS [None]
  - MYALGIA [None]
  - THROMBOCYTOPENIA [None]
  - THROMBOSIS [None]
